FAERS Safety Report 10908778 (Version 2)
Quarter: 2015Q1

REPORT INFORMATION
  Report Type: Spontaneous
  Country: JP (occurrence: JP)
  Receive Date: 20150312
  Receipt Date: 20150318
  Transmission Date: 20150721
  Serious: Yes (Other)
  Sender: FDA-Public Use
  Company Number: JP-PFIZER INC-2015089129

PATIENT
  Age: 63 Year
  Sex: Male

DRUGS (6)
  1. FLUCONAZOLE. [Concomitant]
     Active Substance: FLUCONAZOLE
  2. MEROPENEM. [Concomitant]
     Active Substance: MEROPENEM
  3. CAMPTO [Suspect]
     Active Substance: IRINOTECAN
     Indication: SMALL CELL LUNG CANCER
     Dosage: 90 MG, 1X/DAY
     Route: 041
     Dates: start: 201001, end: 201103
  4. CARBOPLATIN. [Suspect]
     Active Substance: CARBOPLATIN
     Indication: SMALL CELL LUNG CANCER
     Dosage: 650 MG, 1X/DAY
     Route: 041
     Dates: start: 201001, end: 201103
  5. CEFPODOXIME PROXETIL. [Concomitant]
     Active Substance: CEFPODOXIME PROXETIL
  6. VORICONAZOLE. [Concomitant]
     Active Substance: VORICONAZOLE

REACTIONS (8)
  - Second primary malignancy [Unknown]
  - Sepsis [Unknown]
  - Pleurisy [Unknown]
  - Ileus paralytic [Unknown]
  - Myelodysplastic syndrome [Unknown]
  - Plasmacytosis [Unknown]
  - Pericarditis adhesive [Unknown]
  - Renal impairment [Unknown]

NARRATIVE: CASE EVENT DATE: 201205
